FAERS Safety Report 17262013 (Version 1)
Quarter: 2019Q4

REPORT INFORMATION
  Report Type: Spontaneous
  Country: US (occurrence: US)
  Receive Date: 20191218
  Receipt Date: 20191218
  Transmission Date: 20200122
  Serious: No
  Sender: FDA-Public Use
  Company Number: None

PATIENT
  Age: 18 Year
  Sex: Male

DRUGS (1)
  1. RASUVO [Suspect]
     Active Substance: METHOTREXATE SODIUM
     Indication: IRIDOCYCLITIS
     Route: 058
     Dates: start: 201910

REACTIONS (3)
  - Vomiting [None]
  - Nausea [None]
  - Therapy change [None]

NARRATIVE: CASE EVENT DATE: 201910
